FAERS Safety Report 6241577-3 (Version None)
Quarter: 2009Q2

REPORT INFORMATION
  Report Type: 
  Country: None (occurrence: None)
  Receive Date: 20090623
  Receipt Date: 20041223
  Transmission Date: 20091009
  Serious: Yes (Hospitalization)
  Sender: FDA-Public Use
  Company Number: BE-ROCHE-386350

PATIENT
  Sex: Male
  Weight: 72.9 kg

DRUGS (38)
  1. DACLIZUMAB [Suspect]
     Route: 042
     Dates: start: 20041016
  2. DACLIZUMAB [Suspect]
     Route: 042
     Dates: start: 20041029, end: 20041213
  3. MYCOPHENOLATE MOFETIL [Suspect]
     Dosage: DRUG REPORTED: MOFETIL
     Route: 048
     Dates: start: 20041016, end: 20041016
  4. CYCLOSPORINE [Suspect]
     Dosage: DRUG REPORTED: CYCLOSPORINE
     Route: 048
     Dates: start: 20041016
  5. CYCLOSPORINE [Suspect]
     Route: 048
     Dates: start: 20041105
  6. CYCLOSPORINE [Suspect]
     Route: 048
     Dates: start: 20050114
  7. CYCLOSPORINE [Suspect]
     Route: 048
     Dates: start: 20050205
  8. CYCLOSPORINE [Suspect]
     Route: 048
     Dates: start: 20050307
  9. CYCLOSPORINE [Suspect]
     Route: 048
     Dates: start: 20050510
  10. CYCLOSPORINE [Suspect]
     Route: 048
     Dates: start: 20051018
  11. CYCLOSPORINE [Suspect]
     Dosage: DRUG REPORTED: CYCLOSPORINE
     Route: 048
     Dates: start: 20041030
  12. CYCLOSPORINE [Suspect]
     Dosage: DRUG REPORTED: CYCLOSPORINE
     Route: 048
     Dates: start: 20041228
  13. METHYLPREDNISOLONE [Suspect]
     Dosage: DRUG REPORTED: METHYLOPREDNISOLON
     Route: 048
     Dates: start: 20041018
  14. METHYLPREDNISOLONE [Suspect]
     Route: 048
     Dates: start: 20050112
  15. METHYLPREDNISOLONE [Suspect]
     Route: 048
     Dates: start: 20050113
  16. TERAZOSIN HCL [Concomitant]
     Route: 048
     Dates: start: 20041030
  17. TERAZOSIN HCL [Concomitant]
     Route: 048
     Dates: start: 20041130
  18. TERAZOSIN HCL [Concomitant]
     Route: 048
     Dates: start: 20041227
  19. TERAZOSIN HCL [Concomitant]
     Route: 048
     Dates: start: 20050504
  20. VALGANCICLOVIR HCL [Concomitant]
     Route: 048
     Dates: start: 20041020, end: 20050115
  21. VALGANCICLOVIR HCL [Concomitant]
     Route: 048
     Dates: start: 20050115, end: 20050416
  22. AMLODIPINE [Concomitant]
     Route: 048
     Dates: start: 20041018, end: 20041220
  23. AMLODIPINE [Concomitant]
     Route: 048
     Dates: start: 20041227
  24. AMLODIPINE [Concomitant]
     Route: 048
     Dates: start: 20050307, end: 20050316
  25. OMEPRAZOLE [Concomitant]
     Route: 048
     Dates: start: 20041124
  26. ALLOPURINOL [Concomitant]
     Route: 048
     Dates: start: 20041020, end: 20041116
  27. ALLOPURINOL [Concomitant]
     Route: 048
     Dates: start: 20050623
  28. AMLODIPINE [Concomitant]
     Route: 048
     Dates: start: 20050921
  29. BISOPROLOL [Concomitant]
     Route: 048
     Dates: start: 20041018
  30. CEFAZOLIN [Concomitant]
     Route: 042
     Dates: start: 20041016, end: 20041017
  31. METHYLPREDNISOLONE [Suspect]
     Dosage: DRUG REPORTED: METHYLOPREDNISOLON
     Route: 042
     Dates: start: 20041016
  32. METHYLPREDNISOLONE [Suspect]
     Route: 042
     Dates: start: 20050107
  33. METHYLPREDNISOLONE [Suspect]
     Route: 042
     Dates: start: 20050112
  34. PERINDOPRIL ERBUMINE [Concomitant]
     Route: 048
     Dates: start: 20041220, end: 20050115
  35. PERINDOPRIL ERBUMINE [Concomitant]
     Route: 048
     Dates: start: 20050204
  36. PIPERACILLINE [Concomitant]
     Dosage: FORM: VIAL
     Route: 042
     Dates: start: 20041024, end: 20041105
  37. PIPERACILLINE [Concomitant]
     Route: 042
     Dates: start: 20041110
  38. PIPERACILLINE [Concomitant]
     Dosage: FREQUENCY: -/DAY
     Route: 042
     Dates: start: 20041116, end: 20041129

REACTIONS (3)
  - CYTOMEGALOVIRUS INFECTION [None]
  - PSEUDOMONAS INFECTION [None]
  - URINARY TRACT INFECTION PSEUDOMONAL [None]
